FAERS Safety Report 8831101 (Version 3)
Quarter: 2012Q4

REPORT INFORMATION
  Report Type: 
  Country: US (occurrence: US)
  Receive Date: 20121009
  Receipt Date: 20121204
  Transmission Date: 20130627
  Serious: Yes (Hospitalization, Other)
  Sender: FDA-Public Use
  Company Number: US-PFIZER INC-2012247840

PATIENT
  Age: 90 Year
  Sex: Male
  Weight: 71.66 kg

DRUGS (7)
  1. SUTENT [Suspect]
     Indication: GASTROINTESTINAL NEOPLASM
     Dosage: 50 mg, 42 day cycle
     Dates: start: 20120917, end: 20121120
  2. SUTENT [Suspect]
     Indication: MALIGNANT SOFT TISSUE NEOPLASM
  3. ACETYLSALICYLIC ACID [Concomitant]
     Indication: ANTICOAGULANT THERAPY
     Dosage: 40 mg,daily
  4. ACETYLSALICYLIC ACID [Concomitant]
     Dosage: 81 mg, UNK
  5. METOCLOPRAMIDE [Concomitant]
     Dosage: 10 mg, daily
  6. PANTOPRAZOLE [Concomitant]
     Dosage: 40 mg,daily
  7. NYSTATIN [Concomitant]
     Dosage: UNK

REACTIONS (16)
  - Tumour rupture [Unknown]
  - Abdominal pain [Unknown]
  - Oral discomfort [Not Recovered/Not Resolved]
  - Glossodynia [Not Recovered/Not Resolved]
  - Tongue disorder [Not Recovered/Not Resolved]
  - Dry mouth [Not Recovered/Not Resolved]
  - Infection [Recovered/Resolved]
  - Dysgeusia [Unknown]
  - Nausea [Unknown]
  - Dyspepsia [Unknown]
  - Early satiety [Unknown]
  - Abdominal pain upper [Unknown]
  - Abdominal pain lower [Unknown]
  - Flatulence [Unknown]
  - Fatigue [Unknown]
  - Muscle spasms [Unknown]
